FAERS Safety Report 15866200 (Version 3)
Quarter: 2021Q1

REPORT INFORMATION
  Report Type: Spontaneous
  Country: US (occurrence: US)
  Receive Date: 20190125
  Receipt Date: 20210205
  Transmission Date: 20210419
  Serious: Yes (Other)
  Sender: FDA-Public Use
  Company Number: US-PFIZER INC-2019025442

PATIENT
  Age: 70 Year
  Sex: Female
  Weight: 78.93 kg

DRUGS (2)
  1. LYRICA [Suspect]
     Active Substance: PREGABALIN
     Indication: ARTHRITIS
     Dosage: 50 MG, 3X/DAY
     Dates: start: 201809
  2. LYRICA [Suspect]
     Active Substance: PREGABALIN
     Indication: FIBROMYALGIA
     Dosage: 50 MG, 2X/DAY (50MG CAPSULES BY MOUTH IN THE MORNING AND NIGHT)
     Route: 048
     Dates: start: 2017

REACTIONS (2)
  - Neoplasm malignant [Unknown]
  - Dizziness [Recovered/Resolved]
